FAERS Safety Report 5845092-8 (Version None)
Quarter: 2008Q3

REPORT INFORMATION
  Report Type: 
  Country: None (occurrence: None)
  Receive Date: 20080813
  Receipt Date: 20080813
  Transmission Date: 20090109
  Serious: No
  Sender: FDA-Public Use
  Company Number: None

PATIENT
  Age: 45 Year
  Sex: Female
  Weight: 97.5234 kg

DRUGS (1)
  1. NAPROXEN [Suspect]
     Indication: BACK INJURY
     Dosage: 1 PILL 3 X DAILY PO
     Route: 048
     Dates: start: 20080805, end: 20080809

REACTIONS (2)
  - DEPRESSION [None]
  - MEMORY IMPAIRMENT [None]
